FAERS Safety Report 7791625-4 (Version None)
Quarter: 2011Q4

REPORT INFORMATION
  Report Type: 
  Country: None (occurrence: None)
  Receive Date: 20111003
  Receipt Date: 20110919
  Transmission Date: 20120403
  Serious: No
  Sender: FDA-Public Use
  Company Number: US-JNJFOC-20090807372

PATIENT

DRUGS (1)
  1. FENTANYL-100 [Suspect]
     Indication: ILL-DEFINED DISORDER
     Route: 062

REACTIONS (1)
  - ACCIDENTAL EXPOSURE [None]
